FAERS Safety Report 13621875 (Version 1)
Quarter: 2017Q2

REPORT INFORMATION
  Report Type: Spontaneous
  Country: US (occurrence: US)
  Receive Date: 20170607
  Receipt Date: 20170607
  Transmission Date: 20170830
  Serious: No
  Sender: FDA-Public Use
  Company Number: US-ROCHE-1913174

PATIENT
  Sex: Female

DRUGS (3)
  1. KLONOPIN [Suspect]
     Active Substance: CLONAZEPAM
     Indication: PANIC ATTACK
     Route: 065
  2. KLONOPIN [Suspect]
     Active Substance: CLONAZEPAM
     Indication: SEIZURE
  3. KLONOPIN [Suspect]
     Active Substance: CLONAZEPAM
     Indication: MIGRAINE

REACTIONS (1)
  - Palpitations [Unknown]
